FAERS Safety Report 10036194 (Version 2)
Quarter: 2014Q2

REPORT INFORMATION
  Report Type: Spontaneous
  Country: ES (occurrence: ES)
  Receive Date: 20140325
  Receipt Date: 20140403
  Transmission Date: 20141212
  Serious: Yes (Hospitalization)
  Sender: FDA-Public Use
  Company Number: ES-PFIZER INC-2014082836

PATIENT
  Age: 68 Year
  Sex: Male

DRUGS (11)
  1. DOBUPAL RETARD [Suspect]
     Dosage: 150 MG, ONCE DAILY
     Route: 048
     Dates: start: 20131120, end: 20140226
  2. DOBUPAL [Interacting]
     Dosage: 75 MG, ONCE DAILY
     Route: 048
     Dates: start: 20131120, end: 20140305
  3. CELEBREX [Interacting]
     Dosage: 200 MG, ONCE DAILY
     Route: 048
     Dates: start: 20140129, end: 20140220
  4. CONDROSAN [Concomitant]
     Dosage: 400 MG, ONCE DAILY
     Route: 048
     Dates: start: 20140129, end: 20140227
  5. PANTOPRAZOL NORMON [Concomitant]
     Dosage: 40 MG, ONCE DAILY
     Route: 048
     Dates: start: 20131120
  6. LOPID [Concomitant]
     Dosage: 600 MG, ONCE DAILY
     Route: 048
     Dates: start: 20131120
  7. QUETIAPINA QUALIGEN [Concomitant]
     Dosage: 100 MG, ONCE DAILY
     Route: 048
     Dates: start: 20131220
  8. DIAZEPAN ^PRODES^ [Concomitant]
     Dosage: 10 MG, ONCE DAILY
     Route: 048
     Dates: start: 20131122
  9. DIAZEPAN ^PRODES^ [Concomitant]
     Dosage: 2.5 MG, ONCE DAILY
     Route: 048
     Dates: start: 20131122
  10. NOCTAMID [Concomitant]
     Dosage: 2 MG, ONCE DAILY
     Dates: start: 20131227
  11. DUPHALAC [Concomitant]
     Dosage: 1 SACHET 3 TIMES PER DAY
     Route: 048
     Dates: start: 20131227

REACTIONS (2)
  - Drug interaction [Recovered/Resolved]
  - Emotional disorder [Recovered/Resolved]
